FAERS Safety Report 25035419 (Version 1)
Quarter: 2025Q1

REPORT INFORMATION
  Report Type: Spontaneous
  Country: JP (occurrence: JP)
  Receive Date: 20250304
  Receipt Date: 20250304
  Transmission Date: 20250408
  Serious: Yes (Other)
  Sender: Haleon PLC
  Company Number: JP-HALEON-2169460

PATIENT
  Age: 47 Year
  Sex: Male

DRUGS (8)
  1. DICLOFENAC [Suspect]
     Active Substance: DICLOFENAC
     Indication: Neuralgia
     Route: 048
  2. DICLOFENAC [Suspect]
     Active Substance: DICLOFENAC
     Indication: Neuralgia
     Route: 054
  3. Lorcam [Concomitant]
  4. NEUROTROPIN [Concomitant]
     Active Substance: NEUROTROPIN
  5. TRAMCET [Concomitant]
     Active Substance: ACETAMINOPHEN\TRAMADOL
  6. LYRICA [Concomitant]
     Active Substance: PREGABALIN
  7. TIZANIDINE [Concomitant]
     Active Substance: TIZANIDINE
  8. Hypen [Concomitant]

REACTIONS (3)
  - Loss of consciousness [Unknown]
  - Pain [Not Recovered/Not Resolved]
  - Therapeutic product effect incomplete [Unknown]

NARRATIVE: CASE EVENT DATE: 20240416
